FAERS Safety Report 5254628-X (Version None)
Quarter: 2007Q1

REPORT INFORMATION
  Report Type: 
  Country: None (occurrence: None)
  Receive Date: 20070302
  Receipt Date: 20070221
  Transmission Date: 20070707
  Serious: Yes (Other)
  Sender: FDA-Public Use
  Company Number: US-PFIZER INC-2007014784

PATIENT
  Sex: Female
  Weight: 59 kg

DRUGS (8)
  1. SUTENT [Suspect]
     Indication: SMALL INTESTINE CARCINOMA
  2. CODEINE SYRUP [Concomitant]
     Route: 048
  3. LISINOPRIL [Concomitant]
  4. DETROL [Concomitant]
     Dosage: DAILY DOSE:4MG
  5. DILTIAZEM HCL [Concomitant]
  6. DARVOCET [Concomitant]
     Dosage: DAILY DOSE:100MG
  7. DICYCLOMINE [Concomitant]
  8. NITROGLYCERIN [Concomitant]

REACTIONS (4)
  - CHEST PAIN [None]
  - CYSTITIS [None]
  - SKIN DISCOLOURATION [None]
  - STOMATITIS [None]
